FAERS Safety Report 9394715 (Version 1)
Quarter: 2013Q3

REPORT INFORMATION
  Report Type: Spontaneous
  Country: US (occurrence: US)
  Receive Date: 20130711
  Receipt Date: 20130711
  Transmission Date: 20140515
  Serious: No
  Sender: FDA-Public Use
  Company Number: US-B.I. PHARMACEUTICALS,INC./RIDGEFIELD-2013-BI-19867BP

PATIENT
  Age: 74 Year
  Sex: Female
  Weight: 91 kg

DRUGS (6)
  1. MICARDIS [Suspect]
     Indication: HYPERTENSION
     Dosage: 80 MG
     Route: 048
     Dates: start: 2005
  2. HYDROCODONE/ACETAMINOPHEN [Concomitant]
     Indication: HERPES ZOSTER
     Dosage: (TABLET) STRENGTH: 10 MG / 650 MG;
     Route: 048
     Dates: start: 1996
  3. HYDROCODONE/ACETAMINOPHEN [Concomitant]
     Indication: NEURALGIA
  4. BENADRYL [Concomitant]
     Indication: ANXIETY
     Route: 048
     Dates: start: 201301
  5. DIAZEPAM [Concomitant]
     Indication: ANXIETY
     Dosage: 10 MG
     Route: 048
     Dates: start: 2008
  6. CLONIDINE [Concomitant]
     Indication: HYPERTENSION
     Dosage: 0.1 MG
     Route: 048
     Dates: start: 201301

REACTIONS (1)
  - Hypertension [Not Recovered/Not Resolved]
